FAERS Safety Report 18195169 (Version 1)
Quarter: 2020Q3

REPORT INFORMATION
  Report Type: Spontaneous
  Country: AU (occurrence: AU)
  Receive Date: 20200825
  Receipt Date: 20200825
  Transmission Date: 20201103
  Serious: Yes (Other)
  Sender: FDA-Public Use
  Company Number: NVSC2020AU233310

PATIENT
  Age: 28 Year
  Sex: Male

DRUGS (4)
  1. QUETIAPINE. [Suspect]
     Active Substance: QUETIAPINE
     Dosage: 1200 MG, Q12H
     Route: 065
  2. QUETIAPINE. [Suspect]
     Active Substance: QUETIAPINE
     Indication: DEPRESSION
     Dosage: 200 MG
     Route: 065
  3. CLOMIPRAMINE [Concomitant]
     Active Substance: CLOMIPRAMINE
     Indication: OBSESSIVE-COMPULSIVE DISORDER
     Dosage: 150 MG
     Route: 065
  4. QUETIAPINE. [Suspect]
     Active Substance: QUETIAPINE
     Dosage: 200 MG
     Route: 065

REACTIONS (4)
  - Overdose [Unknown]
  - Compartment syndrome [Unknown]
  - Acute kidney injury [Recovered/Resolved]
  - Rhabdomyolysis [Unknown]
